FAERS Safety Report 25299449 (Version 3)
Quarter: 2025Q3

REPORT INFORMATION
  Report Type: Report from Study
  Country: CA (occurrence: CA)
  Receive Date: 20250512
  Receipt Date: 20250922
  Transmission Date: 20251020
  Serious: Yes (Other)
  Sender: AMGEN
  Company Number: CA-BEH-2025204173

PATIENT
  Age: 51 Year
  Sex: Male

DRUGS (1)
  1. AVACOPAN [Suspect]
     Active Substance: AVACOPAN
     Indication: Anti-neutrophil cytoplasmic antibody positive vasculitis
     Dosage: 30 MG, BID
     Route: 048
     Dates: start: 20250503, end: 20250909

REACTIONS (3)
  - IgA nephropathy [Unknown]
  - Drug ineffective [Unknown]
  - Therapy cessation [Unknown]

NARRATIVE: CASE EVENT DATE: 20250101
